FAERS Safety Report 5742521-5 (Version None)
Quarter: 2008Q2

REPORT INFORMATION
  Report Type: 
  Country: None (occurrence: None)
  Receive Date: 20080515
  Receipt Date: 20080507
  Transmission Date: 20081010
  Serious: Yes (Other)
  Sender: FDA-Public Use
  Company Number: WAES 0801FRA00044

PATIENT
  Age: 52 Year
  Sex: Male

DRUGS (7)
  1. TAB RALTEGRAVIR POTASSIUM [Suspect]
     Indication: HIV INFECTION
     Dosage: 400 MG BID PO
     Route: 048
     Dates: start: 20071108, end: 20080111
  2. TAB DARUNAVIR [Suspect]
     Indication: HIV INFECTION
     Dosage: 600 MG BID PO
     Route: 048
     Dates: start: 20071108, end: 20080111
  3. TAB ETRAVIRINE [Suspect]
     Indication: HIV INFECTION
     Dosage: 200 MG BID PO
     Route: 048
     Dates: start: 20071108, end: 20080111
  4. CAP RITONAVIR [Suspect]
     Indication: HIV INFECTION
     Dosage: 100 MG BID PO
     Route: 048
     Dates: start: 20000315, end: 20080111
  5. FENOFIBRATE [Suspect]
     Indication: DYSLIPIDAEMIA
     Dosage: PO
     Route: 048
     Dates: start: 20000301, end: 20080111
  6. BROMAZEPAM [Concomitant]
  7. PERINDOPRIL ARGININE [Concomitant]

REACTIONS (2)
  - DYSPNOEA [None]
  - RHABDOMYOLYSIS [None]
